FAERS Safety Report 15274016 (Version 1)
Quarter: 2018Q3

REPORT INFORMATION
  Report Type: Report from Study
  Country: None (occurrence: BE)
  Receive Date: 20180814
  Receipt Date: 20180814
  Transmission Date: 20181010
  Serious: Yes (Hospitalization, Other)
  Sender: FDA-Public Use
  Company Number: BE-ABBVIE-18K-013-2287541-00

PATIENT
  Sex: Female

DRUGS (6)
  1. DUODOPA [Suspect]
     Active Substance: CARBIDOPA\LEVODOPA
     Dosage: DOSES CONTINUOUSLY MONITORED AND ADAPTED
     Route: 050
     Dates: start: 20160729, end: 20180228
  2. ASAFLOW [Concomitant]
     Active Substance: ASPIRIN
     Indication: PARKINSON^S DISEASE
     Route: 048
  3. ASAFLOW [Concomitant]
     Active Substance: ASPIRIN
  4. DUODOPA [Suspect]
     Active Substance: CARBIDOPA\LEVODOPA
     Dosage: MD=8ML??CD=3.9ML/HR DURING 16HRS ??ED=2ML
     Route: 050
     Dates: start: 20180310
  5. DUODOPA [Suspect]
     Active Substance: CARBIDOPA\LEVODOPA
     Indication: PARKINSON^S DISEASE
     Dosage: MD=11ML??CD=3.5ML/HR DURING 16HRS ??ED=1.5ML
     Route: 050
     Dates: start: 20160725, end: 20160729
  6. DUODOPA [Suspect]
     Active Substance: CARBIDOPA\LEVODOPA
     Dosage: MD=10ML??CD=4.1ML/HR DURING 16HRS ??ED=2ML
     Route: 050
     Dates: start: 20180228, end: 20180310

REACTIONS (3)
  - Venous haemorrhage [Unknown]
  - Asthenia [Not Recovered/Not Resolved]
  - Polyneuropathy [Unknown]

NARRATIVE: CASE EVENT DATE: 2018
